FAERS Safety Report 8482587-5 (Version None)
Quarter: 2012Q3

REPORT INFORMATION
  Report Type: 
  Country: None (occurrence: None)
  Receive Date: 20120702
  Receipt Date: 20120622
  Transmission Date: 20120928
  Serious: Yes (Hospitalization, Disabling, Other)
  Sender: FDA-Public Use
  Company Number: US-MERCK-1203USA03378

PATIENT
  Age: 64 Year
  Sex: Female
  Weight: 69 kg

DRUGS (7)
  1. FOSAMAX [Suspect]
     Indication: OSTEOPENIA
     Route: 048
     Dates: start: 20020201, end: 20090901
  2. VITAMINS (UNSPECIFIED) [Concomitant]
     Route: 065
     Dates: start: 19900101
  3. FOSAMAX [Suspect]
     Route: 048
     Dates: start: 20020204, end: 20090625
  4. FOSAMAX [Suspect]
     Indication: OSTEOPOROSIS PROPHYLAXIS
     Route: 048
     Dates: start: 20020201, end: 20090901
  5. MIACALCIN [Concomitant]
     Indication: GASTROINTESTINAL DISORDER
     Route: 065
  6. SYNTHROID [Concomitant]
     Indication: HYPOTHYROIDISM
     Route: 065
  7. LEXAPRO [Concomitant]
     Route: 065

REACTIONS (53)
  - RENAL FAILURE [None]
  - ILEUS PARALYTIC [None]
  - CHRONIC OBSTRUCTIVE PULMONARY DISEASE [None]
  - GASTROOESOPHAGEAL REFLUX DISEASE [None]
  - RESTLESS LEGS SYNDROME [None]
  - MYALGIA [None]
  - HYPOCALCAEMIA [None]
  - OVARIAN DISORDER [None]
  - ADVERSE DRUG REACTION [None]
  - GASTRIC POLYPS [None]
  - DIVERTICULUM [None]
  - INTERVERTEBRAL DISC DISORDER [None]
  - COLONIC POLYP [None]
  - BONE DISORDER [None]
  - FEMUR FRACTURE [None]
  - OSTEOARTHRITIS [None]
  - HYPERTENSION [None]
  - COUGH [None]
  - MULTIPLE MYELOMA [None]
  - PLASMACYTOMA [None]
  - MULTIPLE FRACTURES [None]
  - ABDOMINAL ABSCESS [None]
  - ADVERSE EVENT [None]
  - BALANCE DISORDER [None]
  - CORONARY ARTERY DISEASE [None]
  - INSOMNIA [None]
  - HYPERCHOLESTEROLAEMIA [None]
  - WISDOM TEETH REMOVAL [None]
  - SPINAL OSTEOARTHRITIS [None]
  - SLEEP APNOEA SYNDROME [None]
  - MUSCLE STRAIN [None]
  - BONE NEOPLASM [None]
  - ABDOMINAL DISTENSION [None]
  - OSTEOPOROSIS [None]
  - CYSTOCELE [None]
  - FALL [None]
  - VITAMIN D DEFICIENCY [None]
  - RASH MACULAR [None]
  - BENIGN BONE NEOPLASM [None]
  - LOW TURNOVER OSTEOPATHY [None]
  - RADICULITIS LUMBOSACRAL [None]
  - PATHOLOGICAL FRACTURE [None]
  - RECTOCELE [None]
  - DUODENAL POLYP [None]
  - PAIN IN EXTREMITY [None]
  - NEUROLOGICAL SYMPTOM [None]
  - HYPERGAMMAGLOBULINAEMIA BENIGN MONOCLONAL [None]
  - CARBOHYDRATE ANTIGEN 125 INCREASED [None]
  - SOMNOLENCE [None]
  - URINARY TRACT INFECTION [None]
  - TRANSIENT ISCHAEMIC ATTACK [None]
  - INTERVERTEBRAL DISC SPACE NARROWING [None]
  - BLADDER SPASM [None]
